FAERS Safety Report 12089399 (Version 2)
Quarter: 2016Q1

REPORT INFORMATION
  Report Type: Spontaneous
  Country: FR (occurrence: FR)
  Receive Date: 20160218
  Receipt Date: 20160315
  Transmission Date: 20160526
  Serious: Yes (Hospitalization)
  Sender: FDA-Public Use
  Company Number: FR-PFIZER INC-2016086310

PATIENT
  Age: 44 Year
  Sex: Male

DRUGS (14)
  1. VFEND [Suspect]
     Active Substance: VORICONAZOLE
     Indication: ASPERGILLUS INFECTION
     Dosage: 6 MG/KG, DAILY (LOADING DOSE)
     Dates: start: 20160108, end: 20160108
  2. ZOVIRAX [Concomitant]
     Active Substance: ACYCLOVIR
     Indication: DIARRHOEA
     Dosage: 1500 MG, DAILY
     Route: 042
     Dates: start: 20151228
  3. FLAGYL [Concomitant]
     Active Substance: METRONIDAZOLE\METRONIDAZOLE HYDROCHLORIDE
     Indication: AGRANULOCYTOSIS
  4. FLUCONAZOLE ARROW [Suspect]
     Active Substance: FLUCONAZOLE
     Indication: HODGKIN^S DISEASE
     Dosage: 400 MG, DAILY
     Route: 048
     Dates: start: 20151219, end: 20160109
  5. PREVISCAN [Concomitant]
     Active Substance: FLUINDIONE
  6. VFEND [Suspect]
     Active Substance: VORICONAZOLE
     Dosage: 4 MG/KG, DAILY
     Dates: start: 20160109, end: 20160113
  7. ZOVIRAX [Concomitant]
     Active Substance: ACYCLOVIR
     Indication: AGRANULOCYTOSIS
  8. TIORFAN [Concomitant]
     Active Substance: RACECADOTRIL
     Indication: AGRANULOCYTOSIS
     Dosage: UNK
     Dates: start: 20151228
  9. BACTRIM [Concomitant]
     Active Substance: SULFAMETHOXAZOLE\TRIMETHOPRIM
     Indication: ASPERGILLUS INFECTION
     Dosage: UNK
     Route: 042
     Dates: start: 20160109
  10. DAUNORUBICIN [Concomitant]
     Active Substance: DAUNORUBICIN
     Indication: ACUTE MYELOID LEUKAEMIA
     Dosage: UNK
     Dates: start: 20151221, end: 20151223
  11. TIORFAN [Concomitant]
     Active Substance: RACECADOTRIL
     Indication: DIARRHOEA
  12. PIPERACILLIN AND TAZOBACTAM [Concomitant]
     Active Substance: PIPERACILLIN SODIUM\TAZOBACTAM SODIUM
     Dosage: 12 G, DAILY
     Dates: start: 20151224
  13. CYTARABINE. [Concomitant]
     Active Substance: CYTARABINE
     Indication: ACUTE MYELOID LEUKAEMIA
     Dosage: UNK
     Dates: start: 20151221, end: 20151227
  14. FLAGYL [Concomitant]
     Active Substance: METRONIDAZOLE\METRONIDAZOLE HYDROCHLORIDE
     Indication: DIARRHOEA
     Dosage: 1500 MG, DAILY
     Route: 048
     Dates: start: 20151228

REACTIONS (1)
  - Mucormycosis [Not Recovered/Not Resolved]

NARRATIVE: CASE EVENT DATE: 201601
